FAERS Safety Report 8979657 (Version 1)
Quarter: 2012Q4

REPORT INFORMATION
  Report Type: 
  Country: GB (occurrence: GB)
  Receive Date: 20121221
  Receipt Date: 20121221
  Transmission Date: 20130627
  Serious: Yes (Hospitalization)
  Sender: FDA-Public Use
  Company Number: GB-009507513-1212GBR007420

PATIENT
  Age: 58 Year
  Sex: Male

DRUGS (4)
  1. NOXAFIL [Suspect]
     Indication: PROPHYLAXIS
     Dosage: UNK mg, UNK
     Route: 048
     Dates: start: 20121129, end: 20121206
  2. [THERAPY UNSPECIFIED] [Concomitant]
     Indication: DIABETES MELLITUS
     Dosage: UNK
  3. ANTINEOPLASTIC (UNSPECIFIED) [Concomitant]
  4. ANTIMICROBIAL (UNSPECIFIED) [Concomitant]

REACTIONS (1)
  - Aspergillosis [Recovering/Resolving]
